FAERS Safety Report 8502344-0 (Version None)
Quarter: 2012Q3

REPORT INFORMATION
  Report Type: 
  Country: None (occurrence: None)
  Receive Date: 20120702
  Receipt Date: 20120618
  Transmission Date: 20120928
  Serious: Yes (Hospitalization)
  Sender: FDA-Public Use
  Company Number: 20120403

PATIENT
  Age: 67 Year
  Sex: Male

DRUGS (4)
  1. DOXORUBICIN HCL [Suspect]
     Indication: CHEMOTHERAPY
  2. VINCRISTINE [Suspect]
     Indication: CHEMOTHERAPY
  3. DEXAMETHASONE SODIUM PHOSPHATE [Suspect]
     Indication: CHEMOTHERAPY
  4. CYCLOPHOSPHAMIDE [Suspect]
     Indication: CHEMOTHERAPY

REACTIONS (15)
  - TUMOUR LYSIS SYNDROME [None]
  - THROMBOCYTOPENIA [None]
  - HYPERURICAEMIA [None]
  - RENAL FAILURE ACUTE [None]
  - RENAL IMPAIRMENT [None]
  - ACUTE PHOSPHATE NEPHROPATHY [None]
  - DECREASED APPETITE [None]
  - LEUKOCYTOSIS [None]
  - ANAEMIA [None]
  - WEIGHT DECREASED [None]
  - MENTAL STATUS CHANGES [None]
  - HEPATOSPLENOMEGALY [None]
  - HYPERCALCAEMIA [None]
  - OLIGURIA [None]
  - HAEMODIALYSIS [None]
